FAERS Safety Report 8419375-1 (Version None)
Quarter: 2012Q2

REPORT INFORMATION
  Report Type: 
  Country: None (occurrence: None)
  Receive Date: 20120607
  Receipt Date: 20120604
  Transmission Date: 20120825
  Serious: Yes (Hospitalization)
  Sender: FDA-Public Use
  Company Number: US-PFIZER INC-2012134055

PATIENT
  Sex: Female
  Weight: 98.866 kg

DRUGS (9)
  1. PREDNISONE [Concomitant]
     Dosage: 2.5 MG, UNK
     Dates: start: 20120322, end: 20120401
  2. COREG [Concomitant]
     Indication: CARDIAC FAILURE CONGESTIVE
     Dosage: 12.5 MG, 2X/DAY
     Dates: end: 20120101
  3. BUMEX [Concomitant]
     Indication: CARDIAC FAILURE CONGESTIVE
     Dosage: 1 MG, 2X/DAY
  4. ACETYLSALICYLIC ACID [Concomitant]
     Indication: CARDIAC FAILURE CONGESTIVE
     Dosage: 1300 MG, DAILY
     Route: 048
  5. ZYVOX [Suspect]
     Indication: PNEUMONIA STAPHYLOCOCCAL
     Dosage: 600 MG, 2X/DAY
     Dates: start: 20120116, end: 20120301
  6. LORATADINE [Concomitant]
     Indication: CARDIAC FAILURE CONGESTIVE
     Dosage: 10 MG, DAILY
  7. PREDNISONE [Concomitant]
     Dosage: 5 MG, UNK
     Dates: start: 20120312, end: 20120321
  8. CARDIZEM [Concomitant]
     Indication: CARDIAC FAILURE CONGESTIVE
     Dosage: 240 MG, DAILY
  9. POTASSIUM CHLORIDE [Concomitant]
     Indication: POLYURIA
     Dosage: 20 MEQ, DAILY

REACTIONS (6)
  - BLOOD PRESSURE DECREASED [None]
  - PLATELET COUNT DECREASED [None]
  - IMMUNE SYSTEM DISORDER [None]
  - DRUG INEFFECTIVE [None]
  - LABILE BLOOD PRESSURE [None]
  - PLATELET COUNT INCREASED [None]
